FAERS Safety Report 5254798-3 (Version None)
Quarter: 2007Q1

REPORT INFORMATION
  Report Type: 
  Country: None (occurrence: None)
  Receive Date: 20070301
  Receipt Date: 20070301
  Transmission Date: 20070707
  Serious: No
  Sender: FDA-Public Use
  Company Number: None

PATIENT
  Sex: Female
  Weight: 81.6475 kg

DRUGS (1)
  1. EFFEXOR XR [Suspect]

REACTIONS (12)
  - ANXIETY [None]
  - BLOOD PRESSURE INCREASED [None]
  - CHILLS [None]
  - CONFUSIONAL STATE [None]
  - DIARRHOEA [None]
  - DRUG WITHDRAWAL SYNDROME [None]
  - FEELING ABNORMAL [None]
  - FEELING COLD [None]
  - HEADACHE [None]
  - NAUSEA [None]
  - THINKING ABNORMAL [None]
  - VOMITING [None]
